FAERS Safety Report 22891697 (Version 3)
Quarter: 2025Q3

REPORT INFORMATION
  Report Type: Report from Study
  Country: CA (occurrence: CA)
  Receive Date: 20230901
  Receipt Date: 20250708
  Transmission Date: 20251021
  Serious: Yes (Other)
  Sender: SANDOZ
  Company Number: CA-002147023-NVSC2021CA296153

PATIENT
  Age: 47 Year
  Sex: Female

DRUGS (7)
  1. ETANERCEPT [Suspect]
     Active Substance: ETANERCEPT
     Indication: Product used for unknown indication
     Route: 065
     Dates: start: 202201, end: 202505
  2. ERELZI [Suspect]
     Active Substance: ETANERCEPT-SZZS
     Indication: Psoriatic arthropathy
     Dosage: 50 MG, QW (DOSAGE 50 MG)
     Route: 058
     Dates: start: 20211222
  3. ERELZI [Suspect]
     Active Substance: ETANERCEPT-SZZS
     Indication: Rheumatoid arthritis
  4. TYLENOL [Suspect]
     Active Substance: ACETAMINOPHEN
     Indication: Product used for unknown indication
     Route: 065
  5. AZITHROMYCIN [Concomitant]
     Active Substance: AZITHROMYCIN
     Route: 065
  6. AZITHROMYCIN [Concomitant]
     Active Substance: AZITHROMYCIN
     Indication: Product used for unknown indication
     Route: 065
  7. CELEBREX [Concomitant]
     Active Substance: CELECOXIB
     Indication: Product used for unknown indication
     Route: 048
     Dates: start: 2014

REACTIONS (15)
  - Blood glucose decreased [Unknown]
  - Cough [Unknown]
  - Mastoiditis [Recovered/Resolved]
  - Pneumonia [Unknown]
  - Upper respiratory tract infection [Recovered/Resolved]
  - Diverticulum intestinal [Unknown]
  - COVID-19 [Recovered/Resolved]
  - Illness [Unknown]
  - Nasopharyngitis [Unknown]
  - Ear infection [Recovered/Resolved]
  - Urinary tract infection [Recovered/Resolved]
  - Injection site pain [Unknown]
  - Nasal congestion [Not Recovered/Not Resolved]
  - Intentional dose omission [Unknown]
  - Product substitution issue [Unknown]

NARRATIVE: CASE EVENT DATE: 20220101
